APPROVED DRUG PRODUCT: D.H.E. 45
Active Ingredient: DIHYDROERGOTAMINE MESYLATE
Strength: 1MG/ML **Federal Register determination that product was not discontinued or withdrawn for safety or effectiveness reasons**
Dosage Form/Route: INJECTABLE;INJECTION
Application: N005929 | Product #001
Applicant: BAUSCH HEALTH US LLC
Approved: Approved Prior to Jan 1, 1982 | RLD: Yes | RS: No | Type: DISCN